FAERS Safety Report 6578430-1 (Version None)
Quarter: 2010Q1

REPORT INFORMATION
  Report Type: 
  Country: None (occurrence: None)
  Receive Date: 20100211
  Receipt Date: 20100203
  Transmission Date: 20100710
  Serious: Yes (Death, Hospitalization, Disabling)
  Sender: FDA-Public Use
  Company Number: US-BAXTER-2010BH001293

PATIENT
  Sex: Female

DRUGS (1)
  1. DIANEAL [Suspect]
     Indication: PERITONEAL DIALYSIS
     Route: 033
     Dates: start: 20071101, end: 20091201

REACTIONS (4)
  - MEDICAL DEVICE COMPLICATION [None]
  - PERIPHERAL VASCULAR DISORDER [None]
  - POOR PERIPHERAL CIRCULATION [None]
  - SEPSIS [None]
